FAERS Safety Report 6623432-X (Version None)
Quarter: 2010Q1

REPORT INFORMATION
  Report Type: 
  Country: None (occurrence: None)
  Receive Date: 20100304
  Receipt Date: 20100205
  Transmission Date: 20100710
  Serious: Yes (Death, Hospitalization)
  Sender: FDA-Public Use
  Company Number: 382667

PATIENT
  Age: 17 Year
  Sex: Female

DRUGS (16)
  1. ETOPOSIDE [Suspect]
     Indication: ACUTE LYMPHOCYTIC LEUKAEMIA
     Dosage: 100 MG/M2, 1 DAY, INTRAVENOUS
     Route: 042
     Dates: start: 20090420, end: 20090424
  2. (CLOFARABINE) [Suspect]
     Indication: ACUTE LYMPHOCYTIC LEUKAEMIA
     Dosage: 40 MG/M2, 1 DAY, INTRAVENOUS
     Route: 042
     Dates: start: 20090420, end: 20090424
  3. CYCLOPHOSPHAMIDE [Suspect]
     Indication: ACUTE LYMPHOCYTIC LEUKAEMIA
     Dosage: 440 MG/M2, 1 DAY, INTRAVENOUS
     Route: 042
     Dates: start: 20090420, end: 20090424
  4. ACYCLOVIR SODIUM [Concomitant]
  5. (CETRIZINE) [Concomitant]
  6. (CO-TRIMAZOLE) [Concomitant]
  7. (LEVOMEPROMAZINE) [Concomitant]
  8. ONDANSETRON [Concomitant]
  9. (PARACETAMOL) [Concomitant]
  10. PHENYTOIN [Concomitant]
  11. (CASPOFUNGIN) [Concomitant]
  12. (CYCLIZINE) [Concomitant]
  13. (BISOPROLOL) [Concomitant]
  14. CHLORPHENIRAMINE MALEATE [Concomitant]
  15. LANSOPRAZOLE [Concomitant]
  16. (SALBUTAMOL) [Concomitant]

REACTIONS (4)
  - DYSPONESIS [None]
  - GENERAL PHYSICAL HEALTH DETERIORATION [None]
  - NEUTROPENIA [None]
  - RESPIRATORY FAILURE [None]
